FAERS Safety Report 4473722-4 (Version None)
Quarter: 2004Q4

REPORT INFORMATION
  Report Type: 
  Country: None (occurrence: None)
  Receive Date: 20040909
  Receipt Date: 20040409
  Transmission Date: 20050328
  Serious: Yes (Hospitalization)
  Sender: FDA-Public Use
  Company Number: APP200400386

PATIENT
  Age: 21 Year
  Sex: Female
  Weight: 81.6475 kg

DRUGS (5)
  1. OXYTOCIN [Suspect]
     Indication: POSTPARTUM HAEMORRHAGE
     Dosage: 20 UNITS IN INTRAVENOUS FLUIDS, INTRAVENOUS
     Route: 042
     Dates: start: 20040402, end: 20040402
  2. OXYTOCIN [Suspect]
     Indication: POSTPARTUM HAEMORRHAGE
     Dosage: 20 UNITS IN INTRAVENOUS FLUIDS, INTRAVENOUS
     Route: 042
     Dates: start: 20040403, end: 20040403
  3. TYLENOL [Concomitant]
  4. TORADOL (KETOROLAC TROMETHIAMINE) [Concomitant]
  5. LAMIARIA [Concomitant]

REACTIONS (1)
  - DRUG INEFFECTIVE [None]
